FAERS Safety Report 5708349-7 (Version None)
Quarter: 2008Q2

REPORT INFORMATION
  Report Type: 
  Country: None (occurrence: None)
  Receive Date: 20080417
  Receipt Date: 20080407
  Transmission Date: 20081010
  Serious: Yes (Hospitalization)
  Sender: FDA-Public Use
  Company Number: JP-ASTRAZENECA-2008SE01836

PATIENT
  Age: 20377 Day
  Sex: Male

DRUGS (2)
  1. BLOPRESS TABLETS 8 [Suspect]
     Indication: HYPERTENSION
     Route: 048
     Dates: start: 20020830
  2. ALLOPURINOL [Concomitant]
     Route: 048
     Dates: start: 20020830

REACTIONS (1)
  - SHOCK [None]
